FAERS Safety Report 20432712 (Version 1)
Quarter: 2022Q1

REPORT INFORMATION
  Report Type: Spontaneous
  Country: US (occurrence: US)
  Receive Date: 20220204
  Receipt Date: 20220204
  Transmission Date: 20220423
  Serious: Yes (Other)
  Sender: FDA-Public Use
  Company Number: US-drreddys-LIT/USA/22/0146665

PATIENT
  Age: 55 Year
  Sex: Female

DRUGS (8)
  1. TIZANIDINE HYDROCHLORIDE [Suspect]
     Active Substance: TIZANIDINE HYDROCHLORIDE
     Indication: Glycogen storage disease type II
  2. IBUPROFEN [Suspect]
     Active Substance: IBUPROFEN
     Indication: Glycogen storage disease type II
  3. CYCLOBENZAPRINE [Suspect]
     Active Substance: CYCLOBENZAPRINE
     Indication: Glycogen storage disease type II
  4. TRAMADOL [Suspect]
     Active Substance: TRAMADOL
     Indication: Glycogen storage disease type II
  5. CLONAZEPAM [Suspect]
     Active Substance: CLONAZEPAM
     Indication: Glycogen storage disease type II
  6. OXYCODONE [Suspect]
     Active Substance: OXYCODONE
     Indication: Glycogen storage disease type II
  7. GABAPENTIN [Suspect]
     Active Substance: GABAPENTIN
     Indication: Glycogen storage disease type II
  8. KETOROLAC [Suspect]
     Active Substance: KETOROLAC TROMETHAMINE
     Indication: Glycogen storage disease type II

REACTIONS (1)
  - Drug ineffective [Unknown]
